FAERS Safety Report 10733397 (Version 3)
Quarter: 2015Q3

REPORT INFORMATION
  Report Type: Report from Study
  Country: US (occurrence: US)
  Receive Date: 20150123
  Receipt Date: 20150827
  Transmission Date: 20151125
  Serious: Yes (Other)
  Sender: FDA-Public Use
  Company Number: US-SA-2014SA021938

PATIENT
  Age: 56 Year
  Sex: Female
  Weight: 50.8 kg

DRUGS (6)
  1. ZOLOFT [Concomitant]
     Active Substance: SERTRALINE HYDROCHLORIDE
     Indication: PAIN
     Dates: start: 2007
  2. FORTEO [Concomitant]
     Active Substance: TERIPARATIDE
     Indication: OSTEOPOROSIS
     Dates: start: 201302
  3. AUBAGIO [Suspect]
     Active Substance: TERIFLUNOMIDE
     Indication: MULTIPLE SCLEROSIS
     Route: 048
     Dates: start: 20140213
  4. BUTORPHANOL [Concomitant]
     Active Substance: BUTORPHANOL
     Indication: PAIN
     Dates: start: 2000
  5. PREMARIN [Concomitant]
     Active Substance: ESTROGENS, CONJUGATED
     Indication: HORMONE REPLACEMENT THERAPY
     Dates: start: 2013
  6. ZOLOFT [Concomitant]
     Active Substance: SERTRALINE HYDROCHLORIDE
     Indication: DEPRESSION
     Dates: start: 2007

REACTIONS (7)
  - Malaise [Unknown]
  - Alopecia [Not Recovered/Not Resolved]
  - Asthenia [Unknown]
  - Micturition urgency [Unknown]
  - Nausea [Not Recovered/Not Resolved]
  - Abasia [Unknown]
  - Headache [Unknown]

NARRATIVE: CASE EVENT DATE: 20140213
